FAERS Safety Report 17440836 (Version 1)
Quarter: 2020Q1

REPORT INFORMATION
  Report Type: Spontaneous
  Country: US (occurrence: US)
  Receive Date: 20200220
  Receipt Date: 20200220
  Transmission Date: 20200409
  Serious: Yes (Death, Hospitalization)
  Sender: FDA-Public Use
  Company Number: US-MYLANLABS-2020M1018809

PATIENT
  Age: 67 Year
  Sex: Male

DRUGS (2)
  1. DILTIAZEM. [Suspect]
     Active Substance: DILTIAZEM
     Indication: PRODUCT USED FOR UNKNOWN INDICATION
     Dosage: THE MAN INTENTIONALLY INGESTED 27 DELAYED RELEASE TABLETS OF DILTIAZEM
     Route: 048
  2. ALCOHOL. [Concomitant]
     Active Substance: ALCOHOL
     Dosage: THE MAN INTENTIONALLY INGESTED ETHANOL
     Route: 048

REACTIONS (6)
  - Toxicity to various agents [Fatal]
  - Seizure [Fatal]
  - Dizziness [Fatal]
  - Completed suicide [Fatal]
  - Cardiac arrest [Fatal]
  - Intentional overdose [Fatal]
